FAERS Safety Report 11228548 (Version 1)
Quarter: 2015Q2

REPORT INFORMATION
  Report Type: Spontaneous
  Country: US (occurrence: US)
  Receive Date: 20150630
  Receipt Date: 20150630
  Transmission Date: 20150821
  Serious: No
  Sender: FDA-Public Use
  Company Number: US-009507513-1506USA015005

PATIENT
  Sex: Male

DRUGS (2)
  1. TEMODAR [Suspect]
     Active Substance: TEMOZOLOMIDE
     Indication: EWING^S SARCOMA
     Dosage: 10 FOUR-WEEK CYCLES, SPANNING A YEAR WITH TREATMENT BREAKS AND THEN ANOTHER THREE CYCLES
     Route: 048
  2. IRINOTECAN HYDROCHLORIDE. [Concomitant]
     Active Substance: IRINOTECAN HYDROCHLORIDE
     Dosage: 10 FOUR-WEEK CYCLES, SPANNING A YEAR WITH TREATMENT BREAKS AND THEN ANOTHER THREE CYCLES

REACTIONS (1)
  - Drug ineffective [Unknown]
